FAERS Safety Report 6721643-6 (Version None)
Quarter: 2010Q2

REPORT INFORMATION
  Report Type: 
  Country: None (occurrence: None)
  Receive Date: 20100512
  Receipt Date: 20100503
  Transmission Date: 20101027
  Serious: Yes (Hospitalization, Other)
  Sender: FDA-Public Use
  Company Number: PHEH2010US01508

PATIENT
  Sex: Female
  Weight: 54.5 kg

DRUGS (12)
  1. EXJADE [Suspect]
     Indication: SICKLE CELL ANAEMIA
     Dosage: 1000 MG, DAILY
     Route: 048
     Dates: start: 20091230
  2. EXJADE [Suspect]
     Indication: IRON OVERLOAD
  3. FOLIC ACID [Concomitant]
     Indication: SICKLE CELL ANAEMIA
     Dosage: 1 MG, QD
     Route: 048
  4. BENADRYL [Concomitant]
     Indication: PRURITUS
     Dosage: 25 TO 50 MG EVERY 6 HOURS PRN
  5. BENADRYL [Concomitant]
     Dosage: 25 MG, Q4H
     Route: 042
  6. MORPHINE [Concomitant]
     Indication: PAIN
     Dosage: 10 MG PRN
     Route: 048
  7. MORPHINE [Concomitant]
     Dosage: 8 MG, Q3H
  8. MORPHINE [Concomitant]
     Dosage: 6 MG, Q2H
     Route: 048
  9. MORPHINE [Concomitant]
     Dosage: 15 MG, Q2H AS NEEDED
     Route: 048
  10. MORPHINE [Concomitant]
     Dosage: 4 MG, Q4H
     Route: 042
  11. CYCLOBENZAPRINE [Concomitant]
     Indication: PAIN
     Dosage: 10 MG, BID
     Route: 048
  12. METHADONE [Concomitant]
     Indication: PAIN
     Dosage: 10 MG, BID
     Route: 048

REACTIONS (23)
  - ABDOMINAL PAIN [None]
  - ACUTE CHEST SYNDROME [None]
  - ARTHRALGIA [None]
  - BACK PAIN [None]
  - BODY TEMPERATURE INCREASED [None]
  - CHEST PAIN [None]
  - CHILLS [None]
  - DIARRHOEA [None]
  - HEART RATE INCREASED [None]
  - HEPATIC CIRRHOSIS [None]
  - HEPATOMEGALY [None]
  - IRON OVERLOAD [None]
  - LEUKOCYTOSIS [None]
  - LIPASE INCREASED [None]
  - LUNG INFILTRATION [None]
  - NAUSEA [None]
  - PAIN [None]
  - PNEUMONIA [None]
  - PULMONARY HYPERTENSION [None]
  - PYREXIA [None]
  - SICKLE CELL ANAEMIA WITH CRISIS [None]
  - URINARY TRACT INFECTION [None]
  - UROBILIN URINE PRESENT [None]
